FAERS Safety Report 14721234 (Version 1)
Quarter: 2018Q2

REPORT INFORMATION
  Report Type: Spontaneous
  Country: FR (occurrence: FR)
  Receive Date: 20180405
  Receipt Date: 20180405
  Transmission Date: 20180711
  Serious: Yes (Death, Life-Threatening, Hospitalization, Other)
  Sender: FDA-Public Use
  Company Number: FR-JNJFOC-20180403883

PATIENT

DRUGS (2)
  1. CONTRAMAL [Suspect]
     Active Substance: TRAMADOL HYDROCHLORIDE
     Indication: PRODUCT USED FOR UNKNOWN INDICATION
     Route: 048
  2. BETAMETHASONE. [Concomitant]
     Active Substance: BETAMETHASONE
     Route: 065

REACTIONS (12)
  - Cardio-respiratory arrest [Fatal]
  - Euphoric mood [Unknown]
  - Vertigo [Recovered/Resolved]
  - Medication error [Unknown]
  - Off label use [Unknown]
  - Crying [Unknown]
  - Altered state of consciousness [Recovered/Resolved]
  - Respiratory depression [Recovered/Resolved]
  - Seizure [Recovered/Resolved]
  - Coma [Not Recovered/Not Resolved]
  - Agitation [Unknown]
  - Intentional overdose [Unknown]
